FAERS Safety Report 18929115 (Version 3)
Quarter: 2021Q1

REPORT INFORMATION
  Report Type: Spontaneous
  Country: CA (occurrence: CA)
  Receive Date: 20210223
  Receipt Date: 20210330
  Transmission Date: 20210420
  Serious: Yes (Other)
  Sender: FDA-Public Use
  Company Number: CA-PFIZER INC-2020060900

PATIENT
  Age: 61 Year
  Sex: Male
  Weight: 80 kg

DRUGS (12)
  1. INLYTA [Suspect]
     Active Substance: AXITINIB
     Dosage: 5 MG, 2X/DAY (TAKE ON EMPTY STOMACH OR AFTER A FAT FREE MEAL)
     Route: 048
     Dates: start: 20201026, end: 2020
  2. CRESTOR [Concomitant]
     Active Substance: ROSUVASTATIN CALCIUM
     Dosage: 10 MG
  3. INLYTA [Suspect]
     Active Substance: AXITINIB
     Dosage: 5 MG, 2X/DAY
     Route: 048
     Dates: start: 20200824, end: 2020
  4. INLYTA [Suspect]
     Active Substance: AXITINIB
     Dosage: 3 MG, 2X/DAY
     Route: 048
     Dates: start: 20210209
  5. INLYTA [Suspect]
     Active Substance: AXITINIB
     Indication: RENAL CELL CARCINOMA
     Dosage: 5 MG, 2X/DAY
     Route: 048
     Dates: start: 20200218, end: 2020
  6. INLYTA [Suspect]
     Active Substance: AXITINIB
     Dosage: 5 MG, 2X/DAY (TAKE ON EMPTY STOMACH OR AFTER A FAT FREE MEAL)
     Route: 048
     Dates: start: 20200914, end: 2020
  7. INLYTA [Suspect]
     Active Substance: AXITINIB
     Dosage: 5 MG, 2X/DAY (TAKE ON EMPTY STOMACH OR AFTER A FAT FREE MEAL) 21 DAYS (NO REPEATS)
     Route: 048
     Dates: start: 20210222
  8. ENSURE [NUTRIENTS NOS] [Concomitant]
     Dosage: UNK
  9. LEVOTHYROXINE. [Concomitant]
     Active Substance: LEVOTHYROXINE
     Dosage: 50 UG, DAILY
  10. TYLENOL [Concomitant]
     Active Substance: ACETAMINOPHEN
     Dosage: UNK
  11. VITAMIN B12 [Concomitant]
     Active Substance: CYANOCOBALAMIN
     Dosage: UNK
  12. KEYTRUDA [Concomitant]
     Active Substance: PEMBROLIZUMAB
     Dosage: UNK

REACTIONS (25)
  - Somnolence [Unknown]
  - Haemoglobin decreased [Recovered/Resolved]
  - Blood thyroid stimulating hormone increased [Unknown]
  - Thyroid disorder [Unknown]
  - Fatigue [Unknown]
  - Blood pressure increased [Recovered/Resolved]
  - Platelet count increased [Recovered/Resolved]
  - Rash [Unknown]
  - Pain [Unknown]
  - Nausea [Unknown]
  - Renal disorder [Unknown]
  - Blood creatinine increased [Unknown]
  - Depression [Unknown]
  - Neutrophil count increased [Recovered/Resolved]
  - Faeces discoloured [Unknown]
  - Dyspnoea [Unknown]
  - Blood thyroid stimulating hormone decreased [Unknown]
  - Proteinuria [Not Recovered/Not Resolved]
  - Cortisol increased [Unknown]
  - Diarrhoea [Recovering/Resolving]
  - Inflammation [Unknown]
  - Malaise [Unknown]
  - Colitis ulcerative [Unknown]
  - Anxiety [Unknown]
  - Decreased appetite [Recovered/Resolved]

NARRATIVE: CASE EVENT DATE: 2020
